FAERS Safety Report 22353105 (Version 3)
Quarter: 2023Q2

REPORT INFORMATION
  Report Type: Report from Study
  Country: EG (occurrence: EG)
  Receive Date: 20230523
  Receipt Date: 20230623
  Transmission Date: 20230721
  Serious: Yes (Death, Hospitalization, Other)
  Sender: FDA-Public Use
  Company Number: EG-JNJFOC-20230541703

PATIENT
  Age: 77 Year
  Sex: Male
  Weight: 65 kg

DRUGS (2)
  1. DARATUMUMAB [Suspect]
     Active Substance: DARATUMUMAB
     Indication: Plasma cell myeloma
     Dosage: 3 VIALS/WEEK
     Route: 042
     Dates: start: 20230507, end: 20230514
  2. CORTISONE [Concomitant]
     Active Substance: CORTISONE

REACTIONS (12)
  - Death [Fatal]
  - Thrombocytopenia [Not Recovered/Not Resolved]
  - Neutropenia [Not Recovered/Not Resolved]
  - Anaemia [Not Recovered/Not Resolved]
  - Pancytopenia [Not Recovered/Not Resolved]
  - Melaena [Unknown]
  - Haematemesis [Unknown]
  - Cardiac failure [Unknown]
  - Renal impairment [Unknown]
  - Pleural effusion [Unknown]
  - Plasma cell myeloma recurrent [Unknown]
  - Mass [Unknown]

NARRATIVE: CASE EVENT DATE: 20230511
